FAERS Safety Report 7644733-2 (Version None)
Quarter: 2011Q3

REPORT INFORMATION
  Report Type: 
  Country: None (occurrence: None)
  Receive Date: 20110725
  Receipt Date: 20110711
  Transmission Date: 20111222
  Serious: Yes (Other)
  Sender: FDA-Public Use
  Company Number: 981303

PATIENT
  Age: 43 Year
  Sex: Female
  Weight: 74 kg

DRUGS (6)
  1. SOLU-MEDROL [Concomitant]
  2. OXALIPLATIN [Suspect]
     Indication: COLORECTAL CANCER
     Dosage: 156 MG MILLIGRAM(S) ( UNKNOWN ) 1) INTRAVENOUS DRIP
     Route: 041
     Dates: start: 20110609, end: 20110609
  3. (CALCIUM MAGNESIUM) [Concomitant]
  4. (ZOPHREN /00955301/) [Concomitant]
  5. LEUCOVORIN CALCIUM [Concomitant]
  6. POLARAMINE [Concomitant]

REACTIONS (6)
  - ERYTHEMA [None]
  - ANGER [None]
  - INFUSION RELATED REACTION [None]
  - MALAISE [None]
  - NEUROPATHY PERIPHERAL [None]
  - SUFFOCATION FEELING [None]
